FAERS Safety Report 16893086 (Version 1)
Quarter: 2019Q4

REPORT INFORMATION
  Report Type: Report from Study
  Country: DE (occurrence: DE)
  Receive Date: 20191008
  Receipt Date: 20191008
  Transmission Date: 20200122
  Serious: Yes (Other)
  Sender: FDA-Public Use
  Company Number: DE-ROCHE-2420979

PATIENT
  Age: 9 Decade
  Sex: Female
  Weight: 49 kg

DRUGS (8)
  1. LONQUEX [Suspect]
     Active Substance: LIPEGFILGRASTIM
     Indication: NEUTROPENIA
     Dosage: LAST DOSE PRIOR AE: 04/APR/2014?MOST RECENT DOSE: 01/MAY/2014
     Route: 065
     Dates: start: 20140227
  2. ONDANSETRON [Concomitant]
     Active Substance: ONDANSETRON
     Route: 042
     Dates: start: 20140226, end: 20140430
  3. DEXAMETHASONE. [Concomitant]
     Active Substance: DEXAMETHASONE
     Route: 042
     Dates: start: 20140226, end: 20140430
  4. TRASTUZUMAB. [Suspect]
     Active Substance: TRASTUZUMAB
     Indication: BREAST CANCER FEMALE
     Dosage: LAST DOSE PRIOR AE: 02/APR/2014
     Route: 041
     Dates: start: 20140226
  5. CARBOPLATIN. [Suspect]
     Active Substance: CARBOPLATIN
     Indication: BREAST CANCER FEMALE
     Dosage: LAST DOSE PRIOR AE: 02/APR/2014
     Route: 042
     Dates: start: 20140226
  6. CLEMASTINE [Concomitant]
     Active Substance: CLEMASTINE
     Route: 042
     Dates: start: 20140226, end: 20140430
  7. DOCETAXEL. [Suspect]
     Active Substance: DOCETAXEL
     Indication: BREAST CANCER FEMALE
     Dosage: LAST DOSE PRIOR AE: 02/APR/2014
     Route: 042
     Dates: start: 20140226
  8. RANITIDINE. [Concomitant]
     Active Substance: RANITIDINE
     Route: 042
     Dates: start: 20140226, end: 20140430

REACTIONS (2)
  - Leukocytosis [Recovered/Resolved]
  - Thrombocytopenia [Unknown]

NARRATIVE: CASE EVENT DATE: 20140423
